FAERS Safety Report 6390999-9 (Version None)
Quarter: 2009Q4

REPORT INFORMATION
  Report Type: 
  Country: None (occurrence: None)
  Receive Date: 20091007
  Receipt Date: 20090824
  Transmission Date: 20100525
  Serious: Yes (Death, Life-Threatening, Other)
  Sender: FDA-Public Use
  Company Number: US-BAXTER-2009BH006682

PATIENT
  Age: 63 Year
  Sex: Female

DRUGS (7)
  1. HEPARIN SODIUM INJECTION [Suspect]
     Indication: CATHETERISATION CARDIAC
     Route: 042
     Dates: start: 20080215, end: 20080215
  2. HEPARIN SODIUM INJECTION [Suspect]
     Indication: CORONARY ARTERY OCCLUSION
     Route: 042
     Dates: start: 20080215, end: 20080215
  3. HEPARIN SODIUM INJECTION [Suspect]
     Route: 042
     Dates: start: 20080215, end: 20080219
  4. HEPARIN SODIUM INJECTION [Suspect]
     Route: 042
     Dates: start: 20080215, end: 20080219
  5. ASPIRIN [Concomitant]
     Indication: DRUG USE FOR UNKNOWN INDICATION
     Route: 065
  6. LIPITOR [Concomitant]
     Indication: DRUG USE FOR UNKNOWN INDICATION
     Route: 065
  7. PLAVIX [Concomitant]
     Indication: DRUG USE FOR UNKNOWN INDICATION
     Route: 065

REACTIONS (14)
  - ANAEMIA [None]
  - ANOXIC ENCEPHALOPATHY [None]
  - CARDIAC ARREST [None]
  - CARDIOGENIC SHOCK [None]
  - HYPERGLYCAEMIA [None]
  - HYPOTENSION [None]
  - IMPAIRED GASTRIC EMPTYING [None]
  - LACTIC ACIDOSIS [None]
  - MYOCARDIAL INFARCTION [None]
  - NEPHROPATHY [None]
  - PNEUMONIA ASPIRATION [None]
  - RENAL FAILURE ACUTE [None]
  - RENAL IMPAIRMENT [None]
  - RESPIRATORY FAILURE [None]
